FAERS Safety Report 9223079 (Version 1)
Quarter: 2013Q1

REPORT INFORMATION
  Report Type: Spontaneous
  Country: US (occurrence: None)
  Receive Date: 20120914
  Receipt Date: 20120914
  Transmission Date: 20140127
  Serious: Yes (Other)
  Sender: FDA-Public Use
  Company Number: JPI-P-017664

PATIENT
  Age: 52 Year
  Sex: Male
  Weight: 81.65 kg

DRUGS (9)
  1. XYREM (500 MILLIGRAM/MILLITERS, SOLUTION) (SODIUM OXYBATE) [Suspect]
     Indication: NARCOLEPSY
     Dosage: (UNKNOWN), ORAL
     Route: 048
     Dates: start: 200912
  2. ESOMEPRAZLE MAGNESIUM [Concomitant]
  3. RANITIDINE HYDROCHLORIDE [Concomitant]
  4. VENLAFAXINE HYDROCHLORIDE [Concomitant]
  5. BUSPIRONE [Concomitant]
  6. ARMODAFINIL [Concomitant]
  7. METAXALONE [Concomitant]
  8. OLANZAPINE [Concomitant]
  9. NAPROXEN SODIUM [Concomitant]

REACTIONS (2)
  - Synovial cyst [None]
  - Pain in extremity [None]
